FAERS Safety Report 19473118 (Version 1)
Quarter: 2021Q2

REPORT INFORMATION
  Report Type: Spontaneous
  Country: CA (occurrence: CA)
  Receive Date: 20210629
  Receipt Date: 20210629
  Transmission Date: 20210717
  Serious: Yes (Death, Other)
  Sender: FDA-Public Use
  Company Number: CA-SA-2021SA212646

PATIENT
  Age: 74 Year
  Sex: Male

DRUGS (1)
  1. LOVENOX [Suspect]
     Active Substance: ENOXAPARIN SODIUM
     Indication: ATRIAL FIBRILLATION
     Route: 058

REACTIONS (3)
  - Abdominal pain [Fatal]
  - Mass [Fatal]
  - Retroperitoneal haemorrhage [Fatal]
